FAERS Safety Report 7191574-9 (Version None)
Quarter: 2010Q4

REPORT INFORMATION
  Report Type: 
  Country: None (occurrence: None)
  Receive Date: 20101223
  Receipt Date: 20101215
  Transmission Date: 20110411
  Serious: Yes (Other)
  Sender: FDA-Public Use
  Company Number: US-ROCHE-749210

PATIENT

DRUGS (1)
  1. AVASTIN [Suspect]
     Route: 065

REACTIONS (4)
  - CATHETER SITE NECROSIS [None]
  - MEDICAL DEVICE COMPLICATION [None]
  - THROMBOSIS [None]
  - WOUND DEHISCENCE [None]
